FAERS Safety Report 4383468-9 (Version None)
Quarter: 2004Q2

REPORT INFORMATION
  Report Type: 
  Country: None (occurrence: None)
  Receive Date: 20040622
  Receipt Date: 20040622
  Transmission Date: 20050107
  Serious: Yes (Hospitalization)
  Sender: FDA-Public Use
  Company Number: None

PATIENT
  Age: 47 Year
  Sex: Male

DRUGS (4)
  1. ENALAPRIL MALEATE [Suspect]
     Indication: HYPERTENSION
     Dosage: PO
     Route: 048
     Dates: start: 20040219
  2. NIFEDIPINE [Concomitant]
  3. COLCHICINE [Concomitant]
  4. ATENOLOL [Concomitant]

REACTIONS (3)
  - ANGIONEUROTIC OEDEMA [None]
  - SELF-MEDICATION [None]
  - SWOLLEN TONGUE [None]
